FAERS Safety Report 7900207-2 (Version None)
Quarter: 2011Q4

REPORT INFORMATION
  Report Type: 
  Country: None (occurrence: None)
  Receive Date: 20111101
  Receipt Date: 20110406
  Transmission Date: 20120403
  Serious: Yes (Other)
  Sender: FDA-Public Use
  Company Number: 275544USA

PATIENT
  Sex: Female

DRUGS (1)
  1. CLONAZEPAM [Suspect]
     Dosage: 1.5 MG (0.5 MG, 3 IN 1 D),

REACTIONS (2)
  - FEELING OF DESPAIR [None]
  - SUICIDAL IDEATION [None]
